FAERS Safety Report 8315809-1 (Version None)
Quarter: 2012Q2

REPORT INFORMATION
  Report Type: 
  Country: None (occurrence: None)
  Receive Date: 20120427
  Receipt Date: 20120421
  Transmission Date: 20120825
  Serious: Yes (Other)
  Sender: FDA-Public Use
  Company Number: MX-AMGEN-MEXCT2012026087

PATIENT
  Age: 85 Year
  Sex: Female

DRUGS (5)
  1. DENOSUMAB [Suspect]
     Indication: OSTEOPOROSIS POSTMENOPAUSAL
     Dosage: 60 MG, Q6H
     Dates: start: 20050125
  2. ENALAPRIL MALEATE [Concomitant]
     Dosage: 20 MG, QD
     Route: 048
     Dates: start: 20050125
  3. ASPIRIN [Concomitant]
     Dosage: 250 MG, QD
     Route: 048
     Dates: start: 20050125
  4. METOPROLOL TARTRATE [Concomitant]
     Dosage: 100 MG, UNK
     Route: 048
  5. CHLORTHALIDONE [Concomitant]
     Dosage: 50 MG, QD
     Route: 048
     Dates: start: 20050125

REACTIONS (3)
  - LEUKOPENIA [None]
  - NEUTROPENIA [None]
  - HAEMOGLOBIN DECREASED [None]
